FAERS Safety Report 15462445 (Version 1)
Quarter: 2018Q4

REPORT INFORMATION
  Report Type: Report from Study
  Country: None (occurrence: GB)
  Receive Date: 20181004
  Receipt Date: 20181004
  Transmission Date: 20190204
  Serious: Yes (Death, Hospitalization)
  Sender: FDA-Public Use
  Company Number: GB-ABBVIE-18K-167-2506453-00

PATIENT
  Age: 56 Year
  Sex: Female
  Weight: 109 kg

DRUGS (21)
  1. METHOTREXATE. [Concomitant]
     Active Substance: METHOTREXATE
     Indication: PRODUCT USED FOR UNKNOWN INDICATION
     Dates: start: 20100113, end: 20180523
  2. BRUFEN RETARD [Concomitant]
     Active Substance: IBUPROFEN
     Indication: PRODUCT USED FOR UNKNOWN INDICATION
     Dates: start: 20110621, end: 20180707
  3. COCODAMOL [Concomitant]
     Active Substance: ACETAMINOPHEN\CODEINE PHOSPHATE
     Indication: PRODUCT USED FOR UNKNOWN INDICATION
     Dates: start: 20161018, end: 20180707
  4. LACTULOSE. [Concomitant]
     Active Substance: LACTULOSE
     Indication: PRODUCT USED FOR UNKNOWN INDICATION
     Dates: start: 20170523, end: 20180707
  5. PARACETAMOL [Concomitant]
     Active Substance: ACETAMINOPHEN
     Indication: PRODUCT USED FOR UNKNOWN INDICATION
     Dates: start: 20170828, end: 20180707
  6. CLARITHROMYCIN. [Concomitant]
     Active Substance: CLARITHROMYCIN
     Dates: start: 20180604, end: 20180611
  7. AMOXICILLIN. [Concomitant]
     Active Substance: AMOXICILLIN
     Dates: start: 20180529, end: 20180602
  8. FLUOXETINE [Concomitant]
     Active Substance: FLUOXETINE HYDROCHLORIDE
     Indication: PRODUCT USED FOR UNKNOWN INDICATION
     Dates: start: 20090720, end: 20180707
  9. GABAPENTIN. [Concomitant]
     Active Substance: GABAPENTIN
     Indication: PRODUCT USED FOR UNKNOWN INDICATION
     Dates: start: 20170705, end: 20180707
  10. TRAMADOL. [Concomitant]
     Active Substance: TRAMADOL
     Indication: PRODUCT USED FOR UNKNOWN INDICATION
     Dates: start: 20170718, end: 20180707
  11. NAPROXEN. [Concomitant]
     Active Substance: NAPROXEN
     Indication: PRODUCT USED FOR UNKNOWN INDICATION
     Dates: start: 20180519, end: 20180707
  12. CLARITHROMYCIN. [Concomitant]
     Active Substance: CLARITHROMYCIN
     Indication: PRODUCT USED FOR UNKNOWN INDICATION
     Dates: start: 20180219, end: 20180226
  13. FLUCLOXACILLIN [Concomitant]
     Active Substance: FLUCLOXACILLIN
     Dates: start: 20180509, end: 20180516
  14. CYCLIZINE [Concomitant]
     Active Substance: CYCLIZINE
     Indication: PRODUCT USED FOR UNKNOWN INDICATION
     Dates: start: 20180410, end: 20180707
  15. PREDNISOLONE. [Concomitant]
     Active Substance: PREDNISOLONE
     Indication: PRODUCT USED FOR UNKNOWN INDICATION
     Dates: start: 20180625, end: 20180707
  16. HUMIRA [Suspect]
     Active Substance: ADALIMUMAB
     Indication: PSORIASIS
     Route: 058
     Dates: start: 20100722, end: 20180523
  17. TRIAMCINOLONE [Concomitant]
     Active Substance: TRIAMCINOLONE
     Indication: PRODUCT USED FOR UNKNOWN INDICATION
     Dates: start: 20180307, end: 20180307
  18. FLUCLOXACILLIN [Concomitant]
     Active Substance: FLUCLOXACILLIN
     Indication: PRODUCT USED FOR UNKNOWN INDICATION
     Dates: start: 20180306, end: 20180313
  19. FOLIC ACID. [Concomitant]
     Active Substance: FOLIC ACID
     Indication: PRODUCT USED FOR UNKNOWN INDICATION
     Dates: start: 20120404, end: 20180707
  20. AMOXICILLIN. [Concomitant]
     Active Substance: AMOXICILLIN
     Indication: PRODUCT USED FOR UNKNOWN INDICATION
     Dates: start: 20180126, end: 20180131
  21. OMEPRAZOLE. [Concomitant]
     Active Substance: OMEPRAZOLE
     Indication: PRODUCT USED FOR UNKNOWN INDICATION
     Dates: start: 20180214, end: 20180707

REACTIONS (4)
  - Lymphoma [Fatal]
  - Immunosuppression [Fatal]
  - Lymphoproliferative disorder [Fatal]
  - Lymphadenopathy [Fatal]

NARRATIVE: CASE EVENT DATE: 20180216
